FAERS Safety Report 10193071 (Version 1)
Quarter: 2014Q2

REPORT INFORMATION
  Report Type: Spontaneous
  Country: FR (occurrence: FR)
  Receive Date: 20140524
  Receipt Date: 20140524
  Transmission Date: 20141212
  Serious: Yes (Hospitalization)
  Sender: FDA-Public Use
  Company Number: FR-AMGEN-FRASP2014036749

PATIENT
  Age: 62 Year
  Sex: Female

DRUGS (6)
  1. ARANESP [Suspect]
     Indication: RENAL FAILURE ACUTE
     Dosage: 60 MUG, QWK
     Route: 065
     Dates: start: 20140328
  2. CALCIPARIN [Concomitant]
     Dosage: 5000 UI/0.2 ML, UNK
     Route: 058
  3. ALDACTONE                          /00006201/ [Concomitant]
     Dosage: 25 MG, UNK
  4. TARDYFERON [Concomitant]
     Dosage: 80 MG, UNK
     Dates: start: 20140310
  5. INEXIUM                            /01479302/ [Concomitant]
     Dosage: 20 MG, QD
     Dates: start: 20140221
  6. SPECIAFOLDINE [Concomitant]
     Dosage: 5 MG, BID

REACTIONS (2)
  - Rash erythematous [Unknown]
  - Pruritus [Unknown]
